FAERS Safety Report 7368670-6 (Version None)
Quarter: 2011Q1

REPORT INFORMATION
  Report Type: 
  Country: None (occurrence: None)
  Receive Date: 20110304
  Receipt Date: 20101029
  Transmission Date: 20110831
  Serious: Yes (Life-Threatening)
  Sender: FDA-Public Use
  Company Number: CLOF-10723

PATIENT
  Age: 62 Year
  Sex: Male

DRUGS (12)
  1. CYTARABINE [Suspect]
     Indication: ACUTE MYELOID LEUKAEMIA
     Dosage: 81.4 MG, QD, INTRAVENOUS
     Route: 042
     Dates: start: 20071017, end: 20071018
  2. VANCOMYCIN [Concomitant]
  3. DEXAMETHASONE (DEXAMETHASONE) [Concomitant]
  4. LANOXIN [Concomitant]
  5. AUGMENTIN (CLAVULANIC ACID) [Concomitant]
  6. CARDIZEM [Concomitant]
  7. CLOFARABINE [Suspect]
     Indication: ACUTE MYELOID LEUKAEMIA
     Dosage: 81.4 MG, QD
     Dates: start: 20071017, end: 20071018
  8. ALLOPURINOL [Concomitant]
  9. FLUCONAZOLE [Concomitant]
  10. CEFEPIME [Concomitant]
  11. ACYCLOVIR [Concomitant]
  12. AZITHROMYCIN [Concomitant]

REACTIONS (8)
  - MUSCULOSKELETAL PAIN [None]
  - CARDIAC TAMPONADE [None]
  - BLOOD GLUCOSE INCREASED [None]
  - PERICARDITIS [None]
  - BLOOD PRESSURE SYSTOLIC INSPIRATORY DECREASED [None]
  - BACK PAIN [None]
  - RESPIRATORY DISTRESS [None]
  - KUSSMAUL RESPIRATION [None]
